FAERS Safety Report 9110192 (Version 1)
Quarter: 2013Q1

REPORT INFORMATION
  Report Type: Spontaneous
  Country: FR (occurrence: FR)
  Receive Date: 20130222
  Receipt Date: 20130222
  Transmission Date: 20140127
  Serious: Yes (Hospitalization)
  Sender: FDA-Public Use
  Company Number: FR-SANOFI-AVENTIS-2013SA009920

PATIENT
  Age: 71 Year
  Sex: Female

DRUGS (9)
  1. LASILIX [Suspect]
     Indication: CARDIAC DISORDER
     Route: 048
  2. TOPALGIC LP [Suspect]
     Indication: MYALGIA
     Route: 048
     Dates: start: 20120913, end: 20120919
  3. IXPRIM [Suspect]
     Indication: MYALGIA
     Dosage: DOSE:3 UNIT(S)
     Route: 048
     Dates: start: 20120912, end: 20120913
  4. EFFERALGAN [Suspect]
     Indication: MYALGIA
     Dosage: DOSE:3 UNIT(S)
     Route: 048
     Dates: start: 20120912, end: 20120913
  5. ARIXTRA [Suspect]
     Indication: PROPHYLAXIS
     Dosage: DOSE:1 UNIT(S)
     Route: 058
     Dates: start: 20120913, end: 20120925
  6. INEXIUM [Suspect]
     Indication: GASTRIC ULCER
     Route: 048
  7. LEXOMIL [Suspect]
     Indication: SLEEP DISORDER
     Route: 048
  8. TRANSIPEG [Suspect]
     Indication: CONSTIPATION
     Dosage: DOSE:3 UNIT(S)
     Route: 048
     Dates: start: 20120915, end: 20120925
  9. AUGMENTIN [Suspect]
     Indication: CHOLECYSTITIS
     Route: 048
     Dates: start: 20120915, end: 20120925

REACTIONS (7)
  - Liver injury [Recovered/Resolved]
  - Transaminases increased [Recovered/Resolved]
  - Nausea [Recovered/Resolved]
  - Vomiting [Recovered/Resolved]
  - Inflammation [Recovered/Resolved]
  - Pyrexia [Recovered/Resolved]
  - C-reactive protein increased [Recovered/Resolved]
